FAERS Safety Report 9243654 (Version 5)
Quarter: 2014Q1

REPORT INFORMATION
  Report Type: Spontaneous
  Country: AR (occurrence: AR)
  Receive Date: 20130422
  Receipt Date: 20140328
  Transmission Date: 20141002
  Serious: Yes (Hospitalization, Other)
  Sender: FDA-Public Use
  Company Number: AR-AMGEN-ARGSP2013026679

PATIENT
  Age: 82 Year
  Sex: Female

DRUGS (1)
  1. ENBREL [Suspect]
     Indication: RHEUMATOID ARTHRITIS
     Dosage: 25 MG, 2X/WEEK
     Route: 058
     Dates: start: 20060702, end: 201303

REACTIONS (5)
  - Femur fracture [Recovering/Resolving]
  - Fall [Recovered/Resolved]
  - Fear [Recovered/Resolved]
  - Hip fracture [Recovered/Resolved]
  - Pneumonia [Recovered/Resolved]
